FAERS Safety Report 6005376-X (Version None)
Quarter: 2008Q4

REPORT INFORMATION
  Report Type: 
  Country: None (occurrence: None)
  Receive Date: 20081216
  Receipt Date: 20081203
  Transmission Date: 20090506
  Serious: Yes (Other)
  Sender: FDA-Public Use
  Company Number: US-GENENTECH-273518

PATIENT
  Sex: Female

DRUGS (2)
  1. BEVACIZUMAB [Suspect]
     Indication: METASTATIC MALIGNANT MELANOMA
     Dosage: 15 MG/KG, Q14D
     Route: 042
     Dates: start: 20070305
  2. INTERFERON ALFA [Suspect]
     Indication: METASTATIC MALIGNANT MELANOMA
     Dosage: 5 MIU/M2, D 1,3,5,8,10,12,14
     Route: 058
     Dates: start: 20070305

REACTIONS (1)
  - LYMPHOPENIA [None]
